FAERS Safety Report 8985679 (Version 1)
Quarter: 2012Q4

REPORT INFORMATION
  Report Type: Report from Study
  Country: BE (occurrence: BE)
  Receive Date: 20121226
  Receipt Date: 20121226
  Transmission Date: 20130627
  Serious: Yes (Hospitalization)
  Sender: FDA-Public Use
  Company Number: BE-TEVA-375606ISR

PATIENT
  Age: 75 Year
  Sex: Female

DRUGS (18)
  1. DOXORUBICIN [Suspect]
     Indication: B-CELL LYMPHOMA
     Dosage: 100 Milligram Daily;
     Route: 042
     Dates: start: 20110131
  2. DOXORUBICIN [Suspect]
     Dosage: 100 Milligram Daily;
     Route: 042
     Dates: start: 20110314
  3. VINCRISTINE [Suspect]
     Indication: B-CELL LYMPHOMA
     Dosage: 2 Milligram Daily;
     Route: 042
     Dates: start: 20110131
  4. G-CSF [Suspect]
     Dosage: 6 Milligram Daily;
     Route: 058
     Dates: start: 20110201
  5. G-CSF [Suspect]
     Dosage: 6 Milligram Daily;
     Route: 058
     Dates: start: 20110315, end: 20110315
  6. CYCLOPHOSPHAMIDE [Suspect]
     Indication: B-CELL LYMPHOMA
     Dosage: 1500 Milligram Daily;
     Route: 042
     Dates: start: 20110131
  7. CYCLOPHOSPHAMIDE [Suspect]
     Dosage: 1500 Milligram Daily;
     Route: 042
     Dates: start: 20110314, end: 20110314
  8. RITUXIMAB [Suspect]
     Indication: MANTLE CELL LYMPHOMA
     Route: 042
     Dates: start: 20110131
  9. RITUXIMAB [Suspect]
     Dosage: 750 Milligram Daily;
     Route: 042
     Dates: start: 20110314, end: 20110314
  10. PREDNISONE [Suspect]
     Indication: MANTLE CELL LYMPHOMA
     Route: 048
     Dates: start: 20110131
  11. PREDNISONE [Suspect]
     Dosage: 100 Milligram Daily;
     Route: 048
     Dates: start: 20110314, end: 20110318
  12. ZANTAC [Concomitant]
     Indication: ABDOMINAL PAIN UPPER
     Dates: start: 20110104, end: 20110320
  13. ZESTORETIC [Concomitant]
     Indication: HYPERTENSION
     Route: 048
     Dates: start: 20101215, end: 20110320
  14. ACICLOVIR [Concomitant]
     Indication: ANTIVIRAL PROPHYLAXIS
     Route: 048
     Dates: start: 20110104, end: 20110320
  15. DIFLUCAN [Concomitant]
     Indication: ANTIFUNGAL PROPHYLAXIS
     Route: 048
     Dates: start: 20110104, end: 20110320
  16. CIPROXIN [Concomitant]
     Indication: ANTIBIOTIC PROPHYLAXIS
     Route: 048
     Dates: start: 20110117, end: 20110320
  17. ALLOPURINOL [Concomitant]
     Indication: GOUT
     Route: 048
     Dates: start: 20110302, end: 20110320
  18. TRIBVIT [Concomitant]
     Route: 048
     Dates: start: 20110314, end: 20110320

REACTIONS (2)
  - Diarrhoea [Recovered/Resolved]
  - Deep vein thrombosis [Recovered/Resolved]
